FAERS Safety Report 4394045-8 (Version None)
Quarter: 2004Q3

REPORT INFORMATION
  Report Type: 
  Country: None (occurrence: None)
  Receive Date: 20040708
  Receipt Date: 20040622
  Transmission Date: 20050211
  Serious: Yes (Hospitalization, Other)
  Sender: FDA-Public Use
  Company Number: A-US2004-06659

PATIENT
  Age: 51 Year
  Sex: Female

DRUGS (12)
  1. TRACLEER [Suspect]
     Indication: PULMONARY HYPERTENSION
     Dosage: SEE IMAGE
     Route: 048
     Dates: start: 20030428, end: 20030910
  2. TRACLEER [Suspect]
     Indication: PULMONARY HYPERTENSION
     Dosage: SEE IMAGE
     Route: 048
     Dates: start: 20030911, end: 20040501
  3. LIPITOR [Suspect]
     Dates: start: 20030301, end: 20040601
  4. VICODIN [Concomitant]
  5. PAROXETINE HCL [Concomitant]
  6. POTASSIUM CHLORIDE [Concomitant]
  7. VIAGRA [Concomitant]
  8. SYNTHROID [Concomitant]
  9. SEROQUEL [Concomitant]
  10. OMEPRAZOLE [Concomitant]
  11. FEMHRT (NORETHISTERONE, ETHINYLESTRADIOL) [Concomitant]
  12. TORSEMIDE (TORASEMIDE) [Concomitant]

REACTIONS (4)
  - ARTHRALGIA [None]
  - BLOOD AMYLASE INCREASED [None]
  - HEPATITIS ACUTE [None]
  - PAIN IN EXTREMITY [None]
